FAERS Safety Report 17808428 (Version 1)
Quarter: 2020Q2

REPORT INFORMATION
  Report Type: Spontaneous
  Country: ES (occurrence: ES)
  Receive Date: 20200520
  Receipt Date: 20200520
  Transmission Date: 20200714
  Serious: Yes (Hospitalization)
  Sender: FDA-Public Use
  Company Number: ES-MYLANLABS-2020M1048987

PATIENT
  Age: 46 Year
  Sex: Female
  Weight: 63.6 kg

DRUGS (17)
  1. METAMIZOLE                         /06276704/ [Suspect]
     Active Substance: METAMIZOLE SODIUM
     Indication: PYREXIA
  2. DOXAZOSIN [Suspect]
     Active Substance: DOXAZOSIN MESYLATE
     Indication: HYPERTENSION
     Dosage: UNK
     Route: 065
     Dates: start: 20180706
  3. PARACETAMOL [Suspect]
     Active Substance: ACETAMINOPHEN
     Indication: ABDOMINAL PAIN UPPER
  4. LOPERAMIDE [Suspect]
     Active Substance: LOPERAMIDE
     Indication: DIARRHOEA
     Dosage: UNK
     Route: 065
     Dates: start: 20200128
  5. TRAMADOL. [Suspect]
     Active Substance: TRAMADOL
     Indication: INFLUENZA
     Dosage: UNK
     Route: 065
     Dates: start: 201912
  6. OLMESARTAN MEDOXOMIL. [Suspect]
     Active Substance: OLMESARTAN MEDOXOMIL
     Indication: PRODUCT USED FOR UNKNOWN INDICATION
     Dosage: UNK
     Route: 065
     Dates: start: 20190114
  7. ROBAXIN [Suspect]
     Active Substance: METHOCARBAMOL
     Indication: MUSCLE SPASMS
     Dosage: ON CERTAIN OCCASIONS
     Route: 065
     Dates: start: 20191122
  8. ANTIHISTAMINICO [Suspect]
     Active Substance: CHLORPHENIRAMINE MALEATE
     Indication: PRODUCT USED FOR UNKNOWN INDICATION
     Dosage: UNK
     Route: 065
     Dates: start: 20200128
  9. PARACETAMOL [Suspect]
     Active Substance: ACETAMINOPHEN
     Indication: INFLUENZA
     Dosage: 1 GRAM, Q8H
     Route: 065
     Dates: start: 201912
  10. JINARC [Suspect]
     Active Substance: TOLVAPTAN
     Indication: CONGENITAL CYSTIC KIDNEY DISEASE
     Dosage: 120 MG, QD
     Route: 065
     Dates: start: 201903, end: 20200115
  11. TRAMADOL. [Suspect]
     Active Substance: TRAMADOL
     Dosage: UNK
  12. PARACETAMOL [Suspect]
     Active Substance: ACETAMINOPHEN
     Indication: PYREXIA
     Dosage: 1 G, Q8H
     Dates: start: 20200128
  13. EBASTINE [Suspect]
     Active Substance: EBASTINE
     Indication: INFLUENZA
     Dosage: UNK
     Route: 065
     Dates: start: 20200210
  14. ESOMEPRAZOLE. [Suspect]
     Active Substance: ESOMEPRAZOLE MAGNESIUM
     Indication: OESOPHAGITIS
     Dosage: SPORADICALLY TAKEN ALTHOUGH IT WAS TAKEN IN THE LAST 48 HRS
     Route: 065
     Dates: start: 20191216
  15. RIZATRIPTAN. [Suspect]
     Active Substance: RIZATRIPTAN
     Indication: PRODUCT USED FOR UNKNOWN INDICATION
     Dosage: UNK,RARELY TAKEN
     Route: 065
     Dates: start: 20180706
  16. METAMIZOLE                         /06276704/ [Suspect]
     Active Substance: METAMIZOLE SODIUM
     Indication: ABDOMINAL PAIN UPPER
     Dosage: UNK
     Route: 030
  17. ASCORBIC ACID. [Suspect]
     Active Substance: ASCORBIC ACID
     Indication: PRODUCT USED FOR UNKNOWN INDICATION
     Dosage: FOR 1 DAY
     Route: 065
     Dates: start: 20200128

REACTIONS (13)
  - Abdominal pain upper [Recovered/Resolved]
  - Alanine aminotransferase increased [Recovered/Resolved]
  - Pyrexia [Recovered/Resolved]
  - Influenza [Recovered/Resolved]
  - Rhinorrhoea [Recovered/Resolved]
  - Aspartate aminotransferase increased [Recovered/Resolved]
  - Muscle spasms [Recovered/Resolved]
  - Cough [Recovered/Resolved]
  - Vomiting [Recovered/Resolved]
  - Diarrhoea [Recovered/Resolved]
  - Oesophagitis [Recovered/Resolved]
  - Liver disorder [Recovered/Resolved]
  - Gallbladder polyp [Unknown]

NARRATIVE: CASE EVENT DATE: 20191122
